FAERS Safety Report 8482866-1 (Version None)
Quarter: 2012Q2

REPORT INFORMATION
  Report Type: 
  Country: None (occurrence: None)
  Receive Date: 20120625
  Receipt Date: 20120611
  Transmission Date: 20120825
  Serious: Yes (Hospitalization, Disabling, Other)
  Sender: FDA-Public Use
  Company Number: 2012MA007198

PATIENT
  Age: 21 Year
  Sex: Male

DRUGS (2)
  1. PHENYTOIN [Suspect]
     Indication: EPILEPSY
     Dosage: 300 MG;QD;PO
     Route: 048
  2. METHAQUALONE (METHAQUALONE) [Suspect]
     Dosage: 250 MG;BID

REACTIONS (10)
  - TOXICITY TO VARIOUS AGENTS [None]
  - COORDINATION ABNORMAL [None]
  - CEREBELLAR ATAXIA [None]
  - SPEECH DISORDER [None]
  - NYSTAGMUS [None]
  - DRUG INTERACTION [None]
  - GAIT DISTURBANCE [None]
  - VISION BLURRED [None]
  - HYPOTONIA [None]
  - INTENTION TREMOR [None]
